FAERS Safety Report 4728073-7 (Version None)
Quarter: 2005Q3

REPORT INFORMATION
  Report Type: 
  Country: None (occurrence: None)
  Receive Date: 20050729
  Receipt Date: 20050721
  Transmission Date: 20060218
  Serious: Yes (Other)
  Sender: FDA-Public Use
  Company Number: PHNU2005DE02615

PATIENT
  Sex: Female

DRUGS (1)
  1. ZOMETA [Suspect]
     Indication: PLASMACYTOMA
     Dosage: 1 DF, QMO
     Route: 042

REACTIONS (2)
  - ASEPTIC NECROSIS BONE [None]
  - SEQUESTRECTOMY [None]
